FAERS Safety Report 6226683-1 (Version None)
Quarter: 2009Q2

REPORT INFORMATION
  Report Type: 
  Country: None (occurrence: None)
  Receive Date: 20090612
  Receipt Date: 20090528
  Transmission Date: 20091009
  Serious: Yes (Hospitalization)
  Sender: FDA-Public Use
  Company Number: AU-JNJFOC-20090600591

PATIENT
  Sex: Male
  Weight: 1.7 kg

DRUGS (5)
  1. TOPIRAMATE [Suspect]
     Indication: DRUG EXPOSURE DURING PREGNANCY
  2. CLAVULIN FORTE [Concomitant]
     Indication: DRUG EXPOSURE DURING PREGNANCY
     Route: 048
  3. LAMOTRIGINE [Concomitant]
     Route: 048
  4. LAMOTRIGINE [Concomitant]
     Indication: DRUG EXPOSURE DURING PREGNANCY
     Route: 048
  5. FOLIC ACID [Concomitant]
     Indication: DRUG EXPOSURE DURING PREGNANCY
     Route: 048

REACTIONS (1)
  - PREMATURE BABY [None]
